FAERS Safety Report 14958259 (Version 1)
Quarter: 2018Q2

REPORT INFORMATION
  Report Type: Spontaneous
  Country: US (occurrence: US)
  Receive Date: 20180509
  Receipt Date: 20180509
  Transmission Date: 20180711
  Serious: Yes (Life-Threatening, Disabling, Other)
  Sender: FDA-Public Use
  Company Number: None

PATIENT
  Age: 30 Year
  Sex: Female
  Weight: 103.7 kg

DRUGS (1)
  1. NEXPLANON [Suspect]
     Active Substance: ETONOGESTREL
     Indication: OESTROGEN REPLACEMENT THERAPY
     Dosage: ?          QUANTITY:1 IMPLANT;OTHER FREQUENCY:3 YEARS;?
     Route: 058
     Dates: start: 20151211, end: 20180507

REACTIONS (15)
  - Papilloedema [None]
  - Idiopathic intracranial hypertension [None]
  - Muscle spasms [None]
  - Vomiting [None]
  - Blindness unilateral [None]
  - Vision blurred [None]
  - Hypoaesthesia [None]
  - Weight increased [None]
  - Migraine [None]
  - Photophobia [None]
  - Dizziness [None]
  - Nausea [None]
  - Acne cystic [None]
  - Panic attack [None]
  - Impaired work ability [None]

NARRATIVE: CASE EVENT DATE: 20161130
